FAERS Safety Report 11942250 (Version 1)
Quarter: 2016Q1

REPORT INFORMATION
  Report Type: Other
  Country: TR (occurrence: TR)
  Receive Date: 20160125
  Receipt Date: 20160125
  Transmission Date: 20160526
  Serious: Yes (Other)
  Sender: FDA-Public Use
  Company Number: TR-DEXPHARM-20160029

PATIENT
  Age: 26 Year
  Sex: Male

DRUGS (3)
  1. MAXIDEX [Concomitant]
     Active Substance: DEXAMETHASONE
     Indication: POSTOPERATIVE CARE
     Route: 047
  2. VOLTAREN [Suspect]
     Active Substance: DICLOFENAC SODIUM
     Indication: POSTOPERATIVE CARE
     Route: 047
  3. VIGAMOX [Concomitant]
     Active Substance: MOXIFLOXACIN HYDROCHLORIDE
     Indication: POSTOPERATIVE CARE
     Route: 047

REACTIONS (3)
  - Corneal epithelium defect [Recovering/Resolving]
  - Ulcerative keratitis [Recovering/Resolving]
  - Conjunctival hyperaemia [Recovering/Resolving]
